FAERS Safety Report 11184150 (Version 1)
Quarter: 2015Q2

REPORT INFORMATION
  Report Type: Spontaneous
  Country: US (occurrence: US)
  Receive Date: 20150612
  Receipt Date: 20150612
  Transmission Date: 20150821
  Serious: No
  Sender: FDA-Public Use
  Company Number: US-PFIZER INC-2015194295

PATIENT
  Age: 71 Year
  Sex: Female

DRUGS (8)
  1. IBUPROFEN. [Suspect]
     Active Substance: IBUPROFEN
     Dosage: UNK
  2. DAYPRO [Suspect]
     Active Substance: OXAPROZIN
     Dosage: UNK
  3. NORFLEX [Suspect]
     Active Substance: ORPHENADRINE CITRATE
     Dosage: UNK
  4. VALIUM [Suspect]
     Active Substance: DIAZEPAM
     Dosage: UNK
  5. LEVAQUIN [Suspect]
     Active Substance: LEVOFLOXACIN
     Dosage: UNK
  6. XANAX [Suspect]
     Active Substance: ALPRAZOLAM
     Dosage: UNK
  7. AMBIEN [Suspect]
     Active Substance: ZOLPIDEM TARTRATE
     Dosage: UNK
  8. LUNESTA [Suspect]
     Active Substance: ESZOPICLONE
     Dosage: UNK

REACTIONS (1)
  - Drug hypersensitivity [Unknown]
